FAERS Safety Report 5494788-9 (Version None)
Quarter: 2007Q4

REPORT INFORMATION
  Report Type: 
  Country: None (occurrence: None)
  Receive Date: 20071015
  Receipt Date: 20070807
  Transmission Date: 20080405
  Serious: No
  Sender: FDA-Public Use
  Company Number: 2007SP002794

PATIENT
  Age: 57 Year
  Sex: Female
  Weight: 119.296 kg

DRUGS (38)
  1. LUNESTA [Suspect]
     Dosage: 3 MG;HS;ORAL : 2 MG;HS;ORAL
     Route: 048
  2. AVELOX [Concomitant]
  3. DUONEB [Concomitant]
  4. BUDESONIDE [Concomitant]
  5. OXYGEN [Concomitant]
  6. PANTOPRAZOLE SODIUM [Concomitant]
  7. SPIRONOLACTONE [Concomitant]
  8. WELLBUTRIN [Concomitant]
  9. AMLODIPINE [Concomitant]
  10. HUMULIN R [Concomitant]
  11. KLOR-CON [Concomitant]
  12. SINGULAIR [Concomitant]
  13. CYCLOBENZAPRINE HCL [Concomitant]
  14. DYAZIDE [Concomitant]
  15. HYDRALAZINE HCL [Concomitant]
  16. BUSPIRONE HCL [Concomitant]
  17. DICYCLOMINE [Concomitant]
  18. VALIUM [Concomitant]
  19. CLONIDINE [Concomitant]
  20. DIPHENHYDRAMINE HCL [Concomitant]
  21. LASIX [Concomitant]
  22. PROMETHAZINE [Concomitant]
  23. OXYCONTIN [Concomitant]
  24. PERCOCET [Concomitant]
  25. MUCINEX [Concomitant]
  26. VISINE EYE DROPS [Concomitant]
  27. ALBUTEROL [Concomitant]
  28. VERAPAMIL [Concomitant]
  29. LOVENOX [Concomitant]
  30. AVINZA [Concomitant]
  31. AMBIEN [Concomitant]
  32. TIMENTIN [Concomitant]
  33. PRINIVIL [Concomitant]
  34. DILTIAZEM [Concomitant]
  35. MIRALAX [Concomitant]
  36. DULCOLAX [Concomitant]
  37. HYDROCORTISONE [Concomitant]
  38. MYCELEX [Concomitant]

REACTIONS (8)
  - BUNDLE BRANCH BLOCK RIGHT [None]
  - CHEST PAIN [None]
  - COUGH [None]
  - DYSPNOEA [None]
  - ORAL CANDIDIASIS [None]
  - PYREXIA [None]
  - TACHYCARDIA [None]
  - WEIGHT DECREASED [None]
